FAERS Safety Report 4700924-1 (Version None)
Quarter: 2005Q2

REPORT INFORMATION
  Report Type: 
  Country: None (occurrence: None)
  Receive Date: 20050113
  Receipt Date: 20050113
  Transmission Date: 20051028
  Serious: Yes (Other)
  Sender: FDA-Public Use
  Company Number: None

PATIENT
  Age: 41 Year
  Sex: Male
  Weight: 95.2554 kg

DRUGS (3)
  1. OXYCONTIN [Suspect]
     Indication: BACK PAIN
     Dosage: 80MG TWO QID
     Dates: start: 20040913, end: 20040924
  2. OXYCONTIN [Suspect]
     Indication: SHOULDER PAIN
     Dosage: 80MG TWO QID
     Dates: start: 20040913, end: 20040924
  3. ALPRAZOLAM [Concomitant]

REACTIONS (4)
  - FATIGUE [None]
  - PAIN [None]
  - PRURITUS [None]
  - URTICARIA [None]
